FAERS Safety Report 10328564 (Version 2)
Quarter: 2014Q3

REPORT INFORMATION
  Report Type: Spontaneous
  Country: US (occurrence: US)
  Receive Date: 20140721
  Receipt Date: 20140909
  Transmission Date: 20150326
  Serious: Yes (Other)
  Sender: FDA-Public Use
  Company Number: US-BAYER-2014-107989

PATIENT
  Age: 21 Year
  Sex: Female

DRUGS (1)
  1. MIRENA [Suspect]
     Active Substance: LEVONORGESTREL
     Indication: CONTRACEPTION
     Dosage: 20 MCG/24HR, CONT
     Route: 015
     Dates: start: 200801

REACTIONS (7)
  - Haemorrhage in pregnancy [None]
  - Abdominal pain [None]
  - Drug ineffective [None]
  - Ectopic pregnancy with contraceptive device [None]
  - Abortion of ectopic pregnancy [None]
  - Device misuse [None]
  - Amenorrhoea [None]

NARRATIVE: CASE EVENT DATE: 2009
